FAERS Safety Report 6226651-X (Version None)
Quarter: 2009Q2

REPORT INFORMATION
  Report Type: 
  Country: None (occurrence: None)
  Receive Date: 20090612
  Receipt Date: 20090520
  Transmission Date: 20091009
  Serious: No
  Sender: FDA-Public Use
  Company Number: US-ABBOTT-09P-163-0574677-00

PATIENT
  Sex: Male
  Weight: 73.548 kg

DRUGS (8)
  1. HUMIRA [Suspect]
     Indication: CROHN'S DISEASE
     Dosage: LOADING DOSES OF 160 MG AND 80 MG
     Route: 058
     Dates: start: 20090501
  2. HUMIRA [Suspect]
     Indication: ARTHRALGIA
     Route: 058
  3. HUMIRA [Suspect]
     Route: 058
  4. ASACOL [Concomitant]
     Indication: CROHN'S DISEASE
     Route: 048
  5. NEXIUM [Concomitant]
     Indication: GASTROOESOPHAGEAL REFLUX DISEASE
     Route: 048
  6. ACCUPRIL [Concomitant]
     Indication: HYPERTENSION
     Route: 048
  7. HYDROCHLOROTHIAZIDE [Concomitant]
     Indication: HYPERTENSION
     Route: 048
  8. SERTRALINE HCL [Concomitant]
     Indication: ANXIETY
     Route: 048

REACTIONS (1)
  - DRUG DOSE OMISSION [None]
